FAERS Safety Report 10025000 (Version 3)
Quarter: 2014Q2

REPORT INFORMATION
  Report Type: Spontaneous
  Country: US (occurrence: US)
  Receive Date: 20140320
  Receipt Date: 20140416
  Transmission Date: 20141212
  Serious: Yes (Hospitalization)
  Sender: FDA-Public Use
  Company Number: US-009507513-1403USA008266

PATIENT
  Sex: Female

DRUGS (2)
  1. JANUVIA [Suspect]
     Indication: TYPE 2 DIABETES MELLITUS
     Dosage: 100 MG, ONCE DAILY
     Route: 048
     Dates: start: 201203, end: 2014
  2. JANUVIA [Suspect]
     Dosage: UNK
     Route: 048
     Dates: start: 201403

REACTIONS (3)
  - Cardiac disorder [Recovering/Resolving]
  - Pneumonia [Recovering/Resolving]
  - Disorientation [Not Recovered/Not Resolved]
